FAERS Safety Report 11503143 (Version 2)
Quarter: 2016Q3

REPORT INFORMATION
  Report Type: Spontaneous
  Country: US (occurrence: US)
  Receive Date: 20150914
  Receipt Date: 20160915
  Transmission Date: 20161109
  Serious: Yes (Hospitalization, Other)
  Sender: FDA-Public Use
  Company Number: US-ASTELLAS-2015US030904

PATIENT
  Sex: Male

DRUGS (1)
  1. XTANDI [Suspect]
     Active Substance: ENZALUTAMIDE
     Indication: PROSTATE CANCER
     Route: 048
     Dates: end: 2015

REACTIONS (18)
  - Fall [Recovered/Resolved]
  - Drug ineffective [Unknown]
  - Joint swelling [Recovered/Resolved]
  - Malignant neoplasm progression [Unknown]
  - Blood calcium increased [Unknown]
  - Muscular weakness [Unknown]
  - Prostatic specific antigen increased [Unknown]
  - Urinary tract infection [Unknown]
  - Diarrhoea [Unknown]
  - Hallucination [Unknown]
  - Nausea [Unknown]
  - Balance disorder [Unknown]
  - Blood potassium decreased [Unknown]
  - Constipation [Unknown]
  - Fatigue [Unknown]
  - Decreased appetite [Unknown]
  - Musculoskeletal stiffness [Unknown]
  - Asthenia [Unknown]
